FAERS Safety Report 8829853 (Version 1)
Quarter: 2012Q4

REPORT INFORMATION
  Report Type: Spontaneous
  Country: US (occurrence: None)
  Receive Date: 20121004
  Receipt Date: 20121004
  Transmission Date: 20130627
  Serious: Yes (Other)
  Sender: FDA-Public Use
  Company Number: CA12-0195

PATIENT
  Age: 54 Year
  Sex: Female
  Weight: 86.8 kg

DRUGS (1)
  1. ENOXAPARIN SODIUM [Suspect]
     Indication: FACTOR V DEFICIENCY
     Dosage: 120mg, once a day, Injection in the morning
     Dates: start: 20120723, end: 20120827

REACTIONS (4)
  - Pulmonary embolism [None]
  - Deep vein thrombosis [None]
  - Product quality issue [None]
  - Product substitution issue [None]
